FAERS Safety Report 15264419 (Version 3)
Quarter: 2018Q3

REPORT INFORMATION
  Report Type: Report from Study
  Country: None (occurrence: AR)
  Receive Date: 20180810
  Receipt Date: 20180914
  Transmission Date: 20181010
  Serious: Yes (Death, Hospitalization, Other)
  Sender: FDA-Public Use
  Company Number: AR-ABBVIE-18K-007-2445629-00

PATIENT
  Sex: Female

DRUGS (1)
  1. HUMIRA [Suspect]
     Active Substance: ADALIMUMAB
     Indication: RHEUMATOID ARTHRITIS
     Route: 058
     Dates: start: 20180419

REACTIONS (5)
  - Anaemia [Fatal]
  - Cardio-respiratory arrest [Fatal]
  - Eye inflammation [Unknown]
  - Renal failure [Fatal]
  - Vasculitis [Unknown]

NARRATIVE: CASE EVENT DATE: 2018
